FAERS Safety Report 7682883-5 (Version None)
Quarter: 2011Q3

REPORT INFORMATION
  Report Type: 
  Country: None (occurrence: None)
  Receive Date: 20110815
  Receipt Date: 20110804
  Transmission Date: 20111222
  Serious: Yes (Other)
  Sender: FDA-Public Use
  Company Number: CA-JNJFOC-20110611471

PATIENT
  Sex: Male
  Weight: 82.7 kg

DRUGS (10)
  1. EFFEXOR [Concomitant]
  2. SULFASALAZINE [Concomitant]
     Route: 048
  3. DIGOXIN [Concomitant]
  4. REMICADE [Suspect]
     Indication: RHEUMATOID ARTHRITIS
     Route: 042
     Dates: start: 20110510
  5. REMICADE [Suspect]
     Route: 042
     Dates: start: 20081101
  6. METHOTREXATE [Concomitant]
  7. ADVAIR DISKUS 100/50 [Concomitant]
  8. OMEPRAZOLE [Concomitant]
  9. VENTOLIN HFA [Concomitant]
  10. FOLIC ACID [Concomitant]

REACTIONS (5)
  - VOMITING [None]
  - NAUSEA [None]
  - DIARRHOEA [None]
  - CHEST PAIN [None]
  - PULMONARY OEDEMA [None]
